FAERS Safety Report 7913973-7 (Version None)
Quarter: 2011Q4

REPORT INFORMATION
  Report Type: 
  Country: None (occurrence: None)
  Receive Date: 20111115
  Receipt Date: 20111103
  Transmission Date: 20120403
  Serious: Yes (Hospitalization)
  Sender: FDA-Public Use
  Company Number: US-BAYER-2011-017950

PATIENT
  Age: 18 Year
  Sex: Female
  Weight: 82 kg

DRUGS (7)
  1. DOXYCYCLINE [Concomitant]
     Indication: TENDONITIS
  2. MINOCYCLINE HCL [Concomitant]
  3. ENTOCORT EC [Concomitant]
     Indication: CROHN'S DISEASE
     Dosage: 9 MG, QD
     Route: 048
     Dates: start: 20080201
  4. INDOCIN [Concomitant]
     Indication: TENDONITIS
  5. LIALDA [Concomitant]
     Indication: CROHN'S DISEASE
     Dosage: 4.8 G, QD
     Route: 048
     Dates: start: 20080201
  6. YAZ [Suspect]
     Indication: PREMENSTRUAL SYNDROME
     Dosage: UNK
     Dates: start: 20080301
  7. ORTHO TRI-CYCLEN LO [Concomitant]
     Dosage: UNK
     Dates: start: 20050101, end: 20080101

REACTIONS (4)
  - INJURY [None]
  - DEPRESSION [None]
  - DEEP VEIN THROMBOSIS [None]
  - PAIN [None]
